FAERS Safety Report 15573408 (Version 1)
Quarter: 2018Q4

REPORT INFORMATION
  Report Type: Report from Study
  Country: US (occurrence: US)
  Receive Date: 20181101
  Receipt Date: 20181101
  Transmission Date: 20190205
  Serious: Yes (Hospitalization, Disabling, Other)
  Sender: FDA-Public Use
  Company Number: US-ROCHE-2183430

PATIENT
  Age: 74 Year
  Sex: Male

DRUGS (1)
  1. PIRFENIDONE. [Suspect]
     Active Substance: PIRFENIDONE
     Indication: IDIOPATHIC PULMONARY FIBROSIS
     Route: 065
     Dates: start: 20180814, end: 201808

REACTIONS (9)
  - Thrombosis [Not Recovered/Not Resolved]
  - Tinnitus [Unknown]
  - Aphonia [Not Recovered/Not Resolved]
  - Gastrooesophageal reflux disease [Unknown]
  - Immobile [Not Recovered/Not Resolved]
  - Hypersensitivity [Unknown]
  - Lung disorder [Not Recovered/Not Resolved]
  - Speech disorder [Not Recovered/Not Resolved]
  - Laryngeal injury [Unknown]

NARRATIVE: CASE EVENT DATE: 201809
